FAERS Safety Report 12739060 (Version 1)
Quarter: 2016Q3

REPORT INFORMATION
  Report Type: Spontaneous
  Country: CN (occurrence: CN)
  Receive Date: 20160913
  Receipt Date: 20160913
  Transmission Date: 20161109
  Serious: Yes (Other)
  Sender: FDA-Public Use
  Company Number: CN-PFIZER INC-2016425121

PATIENT
  Age: 40 Year
  Sex: Male

DRUGS (1)
  1. ZYVOX [Suspect]
     Active Substance: LINEZOLID
     Indication: CENTRAL NERVOUS SYSTEM INFECTION
     Dosage: 0.6 G, 2X/DAY
     Route: 041
     Dates: start: 20160621, end: 20160628

REACTIONS (3)
  - Coagulopathy [Unknown]
  - Ecchymosis [Recovering/Resolving]
  - Platelet count decreased [Unknown]

NARRATIVE: CASE EVENT DATE: 201606
